FAERS Safety Report 12437676 (Version 1)
Quarter: 2016Q2

REPORT INFORMATION
  Report Type: Spontaneous
  Country: US (occurrence: None)
  Receive Date: 20160603
  Receipt Date: 20160603
  Transmission Date: 20160815
  Serious: No
  Sender: FDA-Public Use
  Company Number: None

PATIENT
  Age: 55 Year
  Sex: Female

DRUGS (23)
  1. NUVIGIL [Concomitant]
     Active Substance: ARMODAFINIL
  2. GLUCOSAMINE [Concomitant]
     Active Substance: GLUCOSAMINE
  3. PROZAC [Concomitant]
     Active Substance: FLUOXETINE HYDROCHLORIDE
  4. FLUOXETINE [Concomitant]
     Active Substance: FLUOXETINE HYDROCHLORIDE
  5. LORAZEPAM. [Concomitant]
     Active Substance: LORAZEPAM
  6. XANAX [Concomitant]
     Active Substance: ALPRAZOLAM
  7. PROMETRIUM [Concomitant]
     Active Substance: PROGESTERONE
  8. EXEMESTANE. [Concomitant]
     Active Substance: EXEMESTANE
  9. CYMBALTA [Concomitant]
     Active Substance: DULOXETINE HYDROCHLORIDE
  10. AUGMENTIN [Concomitant]
     Active Substance: AMOXICILLIN\CLAVULANATE POTASSIUM
  11. NEXIUM [Concomitant]
     Active Substance: ESOMEPRAZOLE MAGNESIUM
  12. GABAPENTIN. [Concomitant]
     Active Substance: GABAPENTIN
  13. CARAFATE [Concomitant]
     Active Substance: SUCRALFATE
  14. ARICEPT [Concomitant]
     Active Substance: DONEPEZIL HYDROCHLORIDE
  15. COPAXONE [Suspect]
     Active Substance: GLATIRAMER ACETATE
     Indication: MULTIPLE SCLEROSIS
     Route: 058
     Dates: start: 20090905
  16. PREDNISONE. [Concomitant]
     Active Substance: PREDNISONE
  17. ZANTAC [Concomitant]
     Active Substance: RANITIDINE HYDROCHLORIDE
  18. AZITHROMYCIN ANHYDROUS. [Concomitant]
     Active Substance: AZITHROMYCIN ANHYDROUS
  19. TOPIRAMATE. [Concomitant]
     Active Substance: TOPIRAMATE
  20. AMOX/K CLAV [Concomitant]
     Active Substance: AMOXICILLIN\CLAVULANATE POTASSIUM
  21. LETROZOLE. [Concomitant]
     Active Substance: LETROZOLE
  22. VITAMIN D [Concomitant]
     Active Substance: CHOLECALCIFEROL
  23. CYMBALTA [Concomitant]
     Active Substance: DULOXETINE HYDROCHLORIDE

REACTIONS (1)
  - Seizure [None]

NARRATIVE: CASE EVENT DATE: 201605
